FAERS Safety Report 15352029 (Version 2)
Quarter: 2018Q3

REPORT INFORMATION
  Report Type: Spontaneous
  Country: US (occurrence: US)
  Receive Date: 20180905
  Receipt Date: 20180907
  Transmission Date: 20181010
  Serious: No
  Sender: FDA-Public Use
  Company Number: US-TEVA-2018-US-950565

PATIENT
  Sex: Male

DRUGS (1)
  1. FINASTERIDE. [Suspect]
     Active Substance: FINASTERIDE
     Indication: PROSTATOMEGALY
     Route: 065
     Dates: start: 20080928

REACTIONS (6)
  - Dizziness postural [Unknown]
  - Somnolence [Unknown]
  - Pollakiuria [Unknown]
  - Computerised tomogram abnormal [Unknown]
  - Headache [Unknown]
  - Eye irritation [Unknown]
